FAERS Safety Report 15050901 (Version 1)
Quarter: 2018Q2

REPORT INFORMATION
  Report Type: Other
  Country: US (occurrence: US)
  Receive Date: 20180622
  Receipt Date: 20180622
  Transmission Date: 20180711
  Serious: No
  Sender: FDA-Public Use
  Company Number: US-ASTELLAS-2018US010348

PATIENT
  Age: 93 Year

DRUGS (1)
  1. VESICARE [Suspect]
     Active Substance: SOLIFENACIN SUCCINATE
     Indication: MICTURITION DISORDER
     Route: 065
     Dates: start: 2016

REACTIONS (7)
  - Feeling abnormal [Unknown]
  - Dry eye [Unknown]
  - Nasal dryness [Unknown]
  - Drug ineffective [Unknown]
  - Dry mouth [Unknown]
  - Abdominal distension [Unknown]
  - Constipation [Unknown]

NARRATIVE: CASE EVENT DATE: 20171104
